FAERS Safety Report 8112552-9 (Version None)
Quarter: 2012Q1

REPORT INFORMATION
  Report Type: 
  Country: None (occurrence: None)
  Receive Date: 20120203
  Receipt Date: 20120120
  Transmission Date: 20120608
  Serious: Yes (Death, Disabling, Other)
  Sender: FDA-Public Use
  Company Number: IT-CELGENEUS-083-21880-11122240

PATIENT
  Sex: Male

DRUGS (2)
  1. DEFERASIROX [Suspect]
     Indication: CHELATION THERAPY
     Route: 065
     Dates: start: 20081222
  2. REVLIMID [Suspect]
     Dosage: 10 MILLIGRAM
     Route: 048
     Dates: start: 20090126, end: 20090515

REACTIONS (9)
  - RHINITIS [None]
  - PYREXIA [None]
  - DEATH [None]
  - WEIGHT DECREASED [None]
  - DECREASED APPETITE [None]
  - CONJUNCTIVAL IRRITATION [None]
  - MYELODYSPLASTIC SYNDROME [None]
  - BASAL CELL CARCINOMA [None]
  - ASTHENIA [None]
